FAERS Safety Report 20794259 (Version 11)
Quarter: 2024Q4

REPORT INFORMATION
  Report Type: Report from Study
  Country: JP (occurrence: JP)
  Receive Date: 20220506
  Receipt Date: 20241230
  Transmission Date: 20250114
  Serious: Yes (Death, Hospitalization, Other)
  Sender: ABBVIE
  Company Number: JP-TAKEDA-2022TJP043812

PATIENT
  Age: 66 Year
  Sex: Male

DRUGS (13)
  1. LEUPROLIDE ACETATE [Suspect]
     Active Substance: LEUPROLIDE ACETATE
     Indication: Bulbospinal muscular atrophy congenital
     Dosage: FORM STRENGTH:11.25 MILLIGRAM, Q3MONTHS, LAST ADMIN DATE: 2020?FIRST DOSE
     Route: 058
     Dates: start: 20200310
  2. LEUPROLIDE ACETATE [Suspect]
     Active Substance: LEUPROLIDE ACETATE
     Dosage: SECOND DOSE, LAST ADMIN DATE: 2020
     Route: 058
     Dates: start: 20200609
  3. LEUPROLIDE ACETATE [Suspect]
     Active Substance: LEUPROLIDE ACETATE
     Dosage: THIRD DOSE, LAST ADMIN DATE: 2020
     Route: 058
     Dates: start: 20200908
  4. LEUPROLIDE ACETATE [Suspect]
     Active Substance: LEUPROLIDE ACETATE
     Dosage: FOURTH DOSE
     Route: 058
     Dates: start: 20201208
  5. LEUPROLIDE ACETATE [Suspect]
     Active Substance: LEUPROLIDE ACETATE
     Dosage: FIFTH DOSE
     Route: 058
     Dates: start: 20210309
  6. LEUPROLIDE ACETATE [Suspect]
     Active Substance: LEUPROLIDE ACETATE
     Dosage: SIXTH DOSE, LAST ADMIN DATE: 2021
     Route: 058
     Dates: start: 20210608
  7. LEUPROLIDE ACETATE [Suspect]
     Active Substance: LEUPROLIDE ACETATE
     Dosage: SEVENTH DOSE, LAST ADMIN DATE: 2021
     Route: 058
     Dates: start: 20210907
  8. LEUPROLIDE ACETATE [Suspect]
     Active Substance: LEUPROLIDE ACETATE
     Dosage: EIGHTH DOSE
     Route: 058
     Dates: start: 20211207
  9. LEUPROLIDE ACETATE [Suspect]
     Active Substance: LEUPROLIDE ACETATE
     Dosage: NINTH DOSE
     Route: 058
     Dates: start: 20220308
  10. LEUPROLIDE ACETATE [Suspect]
     Active Substance: LEUPROLIDE ACETATE
     Dosage: 10TH DOSE, LAST ADMIN DATE: 2022
     Route: 058
     Dates: start: 20220607
  11. LEUPROLIDE ACETATE [Suspect]
     Active Substance: LEUPROLIDE ACETATE
     Dosage: 11TH DOSE, LAST ADMIN DATE: 2022
     Route: 058
     Dates: start: 20220906
  12. LEUPROLIDE ACETATE [Suspect]
     Active Substance: LEUPROLIDE ACETATE
     Dosage: 12TH DOSE
     Route: 058
     Dates: start: 20221006
  13. LEUPROLIDE ACETATE [Suspect]
     Active Substance: LEUPROLIDE ACETATE
     Dosage: 13TH DOSE
     Route: 058
     Dates: start: 20230307

REACTIONS (13)
  - Fall [Recovering/Resolving]
  - Brain contusion [Recovering/Resolving]
  - Traumatic intracranial haemorrhage [Recovering/Resolving]
  - Subarachnoid haemorrhage [Recovering/Resolving]
  - Contusion [Recovering/Resolving]
  - Injection site infection [Recovered/Resolved]
  - Injection site reaction [Recovered/Resolved]
  - Injection site pain [Recovered/Resolved]
  - Injection site induration [Recovered/Resolved]
  - Injection site induration [Recovered/Resolved]
  - Lacunar infarction [Unknown]
  - Pneumonia aspiration [Fatal]
  - Death [Fatal]

NARRATIVE: CASE EVENT DATE: 20200609
